FAERS Safety Report 4391272-0 (Version None)
Quarter: 2004Q2

REPORT INFORMATION
  Report Type: 
  Country: None (occurrence: None)
  Receive Date: 20040621
  Receipt Date: 20031210
  Transmission Date: 20050107
  Serious: Yes (Other)
  Sender: FDA-Public Use
  Company Number: USA-2003-0004934

PATIENT
  Age: 56 Year
  Sex: Male

DRUGS (11)
  1. OXYCONTIN [Suspect]
     Indication: PAIN
     Dosage: SEE TEXT
  2. OXYIR [Concomitant]
  3. HYDROCODONE BITARTRATE [Concomitant]
  4. NEXIUM [Concomitant]
  5. SERAX [Concomitant]
  6. VIAGRA [Concomitant]
  7. AMITRIPTYLINE HCL [Concomitant]
  8. PROMETHAZINE [Concomitant]
  9. PRILOSEC [Concomitant]
  10. REMERON [Concomitant]
  11. CODEINE [Concomitant]

REACTIONS (28)
  - ANXIETY [None]
  - ASTHENIA [None]
  - BACK PAIN [None]
  - BRONCHITIS [None]
  - COUGH [None]
  - DEPRESSION [None]
  - DIFFICULTY IN WALKING [None]
  - DRUG DEPENDENCE [None]
  - DRUG INEFFECTIVE [None]
  - DRUG WITHDRAWAL SYNDROME [None]
  - ERECTILE DYSFUNCTION [None]
  - FALL [None]
  - HAEMATURIA [None]
  - NASAL CONGESTION [None]
  - NOCTURIA [None]
  - PAIN [None]
  - PHARYNGITIS [None]
  - PROSTATISM [None]
  - RHINITIS [None]
  - SINUSITIS [None]
  - SKIN LACERATION [None]
  - SLEEP DISORDER [None]
  - SOMNOLENCE [None]
  - TINNITUS [None]
  - URINARY HESITATION [None]
  - URINARY RETENTION [None]
  - WEIGHT DECREASED [None]
  - WHEEZING [None]
